FAERS Safety Report 14669547 (Version 3)
Quarter: 2018Q2

REPORT INFORMATION
  Report Type: Spontaneous
  Country: JP (occurrence: JP)
  Receive Date: 20180322
  Receipt Date: 20180530
  Transmission Date: 20180711
  Serious: Yes (Other)
  Sender: FDA-Public Use
  Company Number: JP-ASTRAZENECA-2018SE34053

PATIENT
  Age: 23413 Day
  Sex: Female
  Weight: 42 kg

DRUGS (20)
  1. PASTARON [Concomitant]
     Active Substance: UREA
     Dosage: DOSE UNKNOWN
     Route: 062
  2. TERAZOSIN [Concomitant]
     Active Substance: TERAZOSIN\TERAZOSIN HYDROCHLORIDE
     Dosage: 0.5 MG, DAILY MORNINGS
     Route: 048
  3. AZILSARTAN [Concomitant]
     Active Substance: AZILSARTAN KAMEDOXOMIL
     Dosage: 20 MG, DAILY MORNINGS
     Route: 048
  4. WYPAX [Concomitant]
     Active Substance: LORAZEPAM
     Dosage: 1 MG, DAILY BEFORE SLEEP
     Route: 048
  5. SINGULAIR [Concomitant]
     Active Substance: MONTELUKAST SODIUM
     Dosage: 10 MG, DAILY EVENINGS
     Route: 048
  6. THYRADIN S [Concomitant]
     Active Substance: LEVOTHYROXINE SODIUM
     Dosage: 50 UG, DAILY MORNINGS
     Route: 048
  7. TAGRISSO [Suspect]
     Active Substance: OSIMERTINIB
     Indication: NON-SMALL CELL LUNG CANCER
     Route: 048
     Dates: start: 20180307, end: 20180312
  8. NEXIUM [Concomitant]
     Active Substance: ESOMEPRAZOLE MAGNESIUM
     Dosage: 10 MG, DAILY (EVENINGS)
     Route: 048
  9. REMERON [Concomitant]
     Active Substance: MIRTAZAPINE
     Dosage: 30 MG, DAILY BEFORE SLEEP
     Route: 048
  10. TAGRISSO [Suspect]
     Active Substance: OSIMERTINIB
     Indication: NON-SMALL CELL LUNG CANCER
     Route: 048
     Dates: start: 20180219, end: 20180226
  11. MAINTATE [Concomitant]
     Active Substance: BISOPROLOL FUMARATE
     Dosage: 1.25 MG, DAILY MORNINGS
     Route: 048
  12. YOKUKANSAN [Concomitant]
     Active Substance: HERBALS
     Dosage: 1 DF, DAILY POWDER MEDICINE
     Route: 048
  13. SHAKUYAKUKANZOTO [Concomitant]
     Active Substance: HERBALS
     Dosage: 1 DF, POWDER MEDICINE, NUMBER OF SEPARATE DOSAGES UNKNOWN, AS REQUIRED
     Route: 048
  14. TAGRISSO [Suspect]
     Active Substance: OSIMERTINIB
     Indication: NON-SMALL CELL LUNG CANCER
     Route: 048
     Dates: start: 201803
  15. ZOLPIDEM TARTRATE. [Concomitant]
     Active Substance: ZOLPIDEM TARTRATE
     Dosage: 10 MG, DAILY BEFORE SLEEP
     Route: 048
  16. MAGNESIUM OXIDE. [Concomitant]
     Active Substance: MAGNESIUM OXIDE
     Dosage: 495 MG, DAILY
     Route: 048
  17. SAMSCA [Concomitant]
     Active Substance: TOLVAPTAN
     Dosage: 15 MG, DAILY, MORNINGS
     Route: 048
  18. ROZEREM [Concomitant]
     Active Substance: RAMELTEON
     Dosage: 8 MG, DAILY EVENINGS
     Route: 048
  19. HIRUDOID [Concomitant]
     Active Substance: GLYCOSAMINOGLYCANS
     Dosage: DOSE UNKNOWN, ON THE FACE
     Route: 065
  20. THYRADIN [Concomitant]
     Active Substance: LEVOTHYROXINE
     Indication: HYPOTHYROIDISM
     Dosage: 75 UG, UNKNOWN
     Route: 048

REACTIONS (5)
  - Bone marrow failure [Unknown]
  - Pleural effusion [Unknown]
  - Neutrophil count decreased [Recovering/Resolving]
  - Platelet count decreased [Recovering/Resolving]
  - Iron deficiency anaemia [Recovering/Resolving]

NARRATIVE: CASE EVENT DATE: 20180226
